FAERS Safety Report 9308490 (Version 3)
Quarter: 2013Q2

REPORT INFORMATION
  Report Type: Spontaneous
  Country: US (occurrence: US)
  Receive Date: 20130524
  Receipt Date: 20130611
  Transmission Date: 20140414
  Serious: Yes (Hospitalization, Other)
  Sender: FDA-Public Use
  Company Number: US-UPSHER-SMITH LABORATORIES, INC.-13001432

PATIENT
  Age: 81 Year
  Sex: Female

DRUGS (4)
  1. PACERONE (USL) [Suspect]
     Indication: HEART RATE INCREASED
     Dosage: 200 MG, BID
     Route: 048
     Dates: start: 201303, end: 201303
  2. PACERONE (USL) [Suspect]
     Dosage: 100 MG, BID
     Route: 048
     Dates: start: 201303, end: 201303
  3. METOPROLOL [Concomitant]
     Indication: HEART RATE INCREASED
     Dosage: UNK
  4. WARFARIN [Concomitant]
     Dosage: UNK

REACTIONS (5)
  - Drug ineffective [Recovered/Resolved]
  - Emphysema [Not Recovered/Not Resolved]
  - Dyspnoea exertional [Not Recovered/Not Resolved]
  - Dizziness [Not Recovered/Not Resolved]
  - Asthenia [Not Recovered/Not Resolved]
